FAERS Safety Report 8375491-4 (Version None)
Quarter: 2012Q2

REPORT INFORMATION
  Report Type: 
  Country: None (occurrence: None)
  Receive Date: 20120518
  Receipt Date: 20120518
  Transmission Date: 20120825
  Serious: Yes (Other)
  Sender: FDA-Public Use
  Company Number: None

PATIENT
  Sex: Female
  Weight: 85.2762 kg

DRUGS (2)
  1. ORTHO TRI-CYCLEN [Suspect]
  2. ORTHO EVRA [Suspect]

REACTIONS (2)
  - DYSPNOEA [None]
  - THROMBOSIS [None]
